FAERS Safety Report 6098527-2 (Version None)
Quarter: 2009Q1

REPORT INFORMATION
  Report Type: 
  Country: None (occurrence: None)
  Receive Date: 20090302
  Receipt Date: 20090223
  Transmission Date: 20090719
  Serious: Yes (Life-Threatening, Hospitalization, Other)
  Sender: FDA-Public Use
  Company Number: DE-BAYER-200914257GPV

PATIENT
  Sex: Female

DRUGS (1)
  1. AVELOX [Suspect]
     Indication: DRUG USE FOR UNKNOWN INDICATION
     Route: 048
     Dates: start: 20081224

REACTIONS (6)
  - ARRHYTHMIA [None]
  - EOSINOPHILIA [None]
  - HEADACHE [None]
  - HYPERSENSITIVITY [None]
  - PULSE ABSENT [None]
  - SYNCOPE [None]
